FAERS Safety Report 17754461 (Version 1)
Quarter: 2020Q2

REPORT INFORMATION
  Report Type: Spontaneous
  Country: US (occurrence: US)
  Receive Date: 20200507
  Receipt Date: 20200507
  Transmission Date: 20200714
  Serious: Yes (Hospitalization)
  Sender: FDA-Public Use
  Company Number: US-ROCHE-2594733

PATIENT
  Sex: Male

DRUGS (8)
  1. LOSARTAN POTASSIUM. [Concomitant]
     Active Substance: LOSARTAN POTASSIUM
  2. METHOTREXATE. [Concomitant]
     Active Substance: METHOTREXATE
  3. ESBRIET [Suspect]
     Active Substance: PIRFENIDONE
     Indication: PULMONARY FIBROSIS
     Route: 048
     Dates: start: 20200422
  4. PREDNISONE. [Concomitant]
     Active Substance: PREDNISONE
  5. ORENCIA [Concomitant]
     Active Substance: ABATACEPT
  6. METHYLPRED [Concomitant]
     Active Substance: METHYLPREDNISOLONE
  7. FOLIC ACID. [Concomitant]
     Active Substance: FOLIC ACID
  8. ROSUVASTATIN. [Concomitant]
     Active Substance: ROSUVASTATIN

REACTIONS (1)
  - Pneumonia [Unknown]
